FAERS Safety Report 7399849-5 (Version None)
Quarter: 2011Q2

REPORT INFORMATION
  Report Type: 
  Country: None (occurrence: None)
  Receive Date: 20110407
  Receipt Date: 20110328
  Transmission Date: 20111010
  Serious: Yes (Other)
  Sender: FDA-Public Use
  Company Number: US-SANOFI-AVENTIS-2011SA018910

PATIENT
  Age: 70 Year
  Sex: Female

DRUGS (8)
  1. IBANDRONATE SODIUM [Concomitant]
  2. MULTAQ [Suspect]
     Indication: ATRIAL FIBRILLATION
     Route: 048
     Dates: start: 20100101
  3. METOPROLOL TARTRATE [Concomitant]
  4. LANOXIN [Concomitant]
  5. POTASSIUM [Concomitant]
  6. LYRICA [Concomitant]
     Indication: TRIGEMINAL NEURALGIA
  7. GLUCOSAMINE [Concomitant]
  8. MULTI-VITAMINS [Concomitant]

REACTIONS (2)
  - ATRIAL FIBRILLATION [None]
  - HYPERTHYROIDISM [None]
